FAERS Safety Report 4527170-9 (Version None)
Quarter: 2004Q4

REPORT INFORMATION
  Report Type: 
  Country: None (occurrence: None)
  Receive Date: 20041126
  Receipt Date: 20040512
  Transmission Date: 20050328
  Serious: Yes (Hospitalization)
  Sender: FDA-Public Use
  Company Number: 2004213079US

PATIENT
  Age: 89 Year
  Sex: Female

DRUGS (1)
  1. ZYVOX [Suspect]
     Indication: ENDOCARDITIS BACTERIAL
     Dosage: 600 MG, BID, ORAL
     Route: 048

REACTIONS (1)
  - THROMBOCYTOPENIA [None]
